FAERS Safety Report 8210490-4 (Version None)
Quarter: 2012Q1

REPORT INFORMATION
  Report Type: 
  Country: None (occurrence: None)
  Receive Date: 20120314
  Receipt Date: 20111130
  Transmission Date: 20120608
  Serious: No
  Sender: FDA-Public Use
  Company Number: US-ASTRAZENECA-2011SE73143

PATIENT
  Age: 52 Year
  Sex: Female

DRUGS (12)
  1. TOPROL-XL [Suspect]
     Route: 048
  2. TOPROL-XL [Suspect]
     Route: 048
  3. PRAVASTATIN [Concomitant]
  4. HYDROCHLOROTHIAZIDE [Concomitant]
  5. PLAVIX [Concomitant]
  6. FLEXERIL [Concomitant]
  7. LASIX [Concomitant]
  8. NEURONTIN [Concomitant]
  9. CATAPRES [Concomitant]
  10. TEGRETOL [Concomitant]
  11. BENAZEPRIL HYDROCHLORIDE [Concomitant]
  12. LYRICA [Concomitant]

REACTIONS (2)
  - BLOOD PRESSURE INCREASED [None]
  - DRUG INEFFECTIVE [None]
